FAERS Safety Report 5011511-2 (Version None)
Quarter: 2006Q2

REPORT INFORMATION
  Report Type: 
  Country: None (occurrence: None)
  Receive Date: 20060524
  Receipt Date: 20060508
  Transmission Date: 20061013
  Serious: Yes (Hospitalization)
  Sender: FDA-Public Use
  Company Number: 0605-298

PATIENT
  Age: 68 Year
  Sex: Female

DRUGS (2)
  1. ALBUTEROL SULATE [Suspect]
     Indication: HYPOKALAEMIA
  2. ALBUTEROL SULATE [Suspect]
     Indication: TACHYCARDIA

REACTIONS (11)
  - CONDITION AGGRAVATED [None]
  - HEART RATE INCREASED [None]
  - HYPERHIDROSIS [None]
  - HYPOKALAEMIA [None]
  - MEDICATION ERROR [None]
  - OEDEMA PERIPHERAL [None]
  - PALLOR [None]
  - RESPIRATORY RATE INCREASED [None]
  - VENTRICULAR EXTRASYSTOLES [None]
  - VENTRICULAR TACHYCARDIA [None]
  - WHEEZING [None]
